FAERS Safety Report 24328368 (Version 2)
Quarter: 2024Q4

REPORT INFORMATION
  Report Type: Report from Study
  Country: GB (occurrence: GB)
  Receive Date: 20240917
  Receipt Date: 20241113
  Transmission Date: 20250115
  Serious: Yes (Other)
  Sender: ALEXION PHARMACEUTICALS
  Company Number: 2024A209679

PATIENT

DRUGS (4)
  1. IRESSA [Suspect]
     Active Substance: GEFITINIB
     Indication: Non-small cell lung cancer
  2. IRESSA [Suspect]
     Active Substance: GEFITINIB
  3. IRESSA [Suspect]
     Active Substance: GEFITINIB
  4. IRESSA [Suspect]
     Active Substance: GEFITINIB

REACTIONS (3)
  - Transient ischaemic attack [Unknown]
  - Carpal tunnel syndrome [Unknown]
  - Arthritis [Unknown]
